FAERS Safety Report 5298733-0 (Version None)
Quarter: 2007Q1

REPORT INFORMATION
  Report Type: 
  Country: None (occurrence: None)
  Receive Date: 20070201
  Receipt Date: 20061104
  Transmission Date: 20070707
  Serious: No
  Sender: FDA-Public Use
  Company Number: 2006PV024601

PATIENT
  Age: 59 Year
  Sex: Female

DRUGS (2)
  1. BYETTA [Suspect]
     Indication: INSULIN RESISTANT DIABETES
     Dosage: 5 MCG; BID; SC
     Route: 058
     Dates: start: 20061103
  2. GLUCOPHAGE [Concomitant]

REACTIONS (3)
  - ERUCTATION [None]
  - MEDICATION ERROR [None]
  - NAUSEA [None]
